FAERS Safety Report 7131447-0 (Version None)
Quarter: 2010Q4

REPORT INFORMATION
  Report Type: 
  Country: None (occurrence: None)
  Receive Date: 20101124
  Receipt Date: 20101124
  Transmission Date: 20110411
  Serious: Yes (Other)
  Sender: FDA-Public Use
  Company Number: None

PATIENT
  Age: 79 Year
  Sex: Male
  Weight: 68 kg

DRUGS (1)
  1. NAFCILLIN [Suspect]
     Indication: OSTEOMYELITIS
     Dosage: 2 GM
     Dates: start: 20100812, end: 20100909

REACTIONS (1)
  - TUBULOINTERSTITIAL NEPHRITIS [None]
